FAERS Safety Report 7638855-X (Version None)
Quarter: 2011Q3

REPORT INFORMATION
  Report Type: 
  Country: None (occurrence: None)
  Receive Date: 20110727
  Receipt Date: 20110725
  Transmission Date: 20111222
  Serious: Yes (Other)
  Sender: FDA-Public Use
  Company Number: US-PFIZER INC-2011168777

PATIENT
  Sex: Male

DRUGS (1)
  1. RELISTOR [Suspect]
     Indication: BOWEL MOVEMENT IRREGULARITY
     Dosage: 12 MG, 1X/DAY
     Route: 058
     Dates: start: 20110301

REACTIONS (2)
  - NEEDLE ISSUE [None]
  - INJURY ASSOCIATED WITH DEVICE [None]
